FAERS Safety Report 19056391 (Version 1)
Quarter: 2021Q1

REPORT INFORMATION
  Report Type: Spontaneous
  Country: FR (occurrence: FR)
  Receive Date: 20210324
  Receipt Date: 20210324
  Transmission Date: 20210420
  Serious: Yes (Hospitalization)
  Sender: FDA-Public Use
  Company Number: NVSC2021FR062757

PATIENT
  Age: 7 Year
  Sex: Female
  Weight: 16.5 kg

DRUGS (22)
  1. VENETOCLAX. [Suspect]
     Active Substance: VENETOCLAX
     Indication: RECURRENT CANCER
     Dosage: 250 MG(DAYS1?10 OF EACH 21 DAY CYCLE)
     Route: 048
     Dates: start: 20200707
  2. SPASFON LYOC [Concomitant]
     Active Substance: PHLOROGLUCINOL
     Indication: ABDOMINAL RIGIDITY
     Dosage: 160 MG, QD
     Route: 048
     Dates: start: 20160828
  3. AMIKLIN [Concomitant]
     Active Substance: AMIKACIN SULFATE
     Dosage: 250 MG,QD
     Route: 042
     Dates: start: 20200808, end: 20200810
  4. FORTUM [Concomitant]
     Active Substance: CEFTAZIDIME
     Indication: FEBRILE BONE MARROW APLASIA
     Dosage: 2100 MG, QD
     Route: 042
     Dates: start: 20200808, end: 20200816
  5. ALLOPURINOL. [Concomitant]
     Active Substance: ALLOPURINOL
     Indication: PROPHYLAXIS
     Dosage: UNK
     Route: 065
     Dates: start: 20200708, end: 20200713
  6. TOPOTECAN HYDROCHLORIDE. [Suspect]
     Active Substance: TOPOTECAN HYDROCHLORIDE
     Indication: RECURRENT CANCER
     Dosage: UNK
     Route: 065
  7. CELLTOP [Suspect]
     Active Substance: ETOPOSIDE
     Indication: NEUROBLASTOMA
     Dosage: UNK
     Route: 065
     Dates: start: 20160806, end: 20161021
  8. ENDOXAN [Suspect]
     Active Substance: CYCLOPHOSPHAMIDE
     Indication: RECURRENT CANCER
     Dosage: UNK (PAST MEDICATION)
     Route: 042
     Dates: start: 20160806, end: 20161021
  9. ENDOXAN [Suspect]
     Active Substance: CYCLOPHOSPHAMIDE
     Indication: REFRACTORY CANCER
     Dosage: 250 UNK (DAYS 1?5 OF 21?DAY CYCLE)
     Route: 042
     Dates: start: 20200708
  10. AMIKLIN [Concomitant]
     Active Substance: AMIKACIN SULFATE
     Dosage: 250 MG,QD
     Route: 042
     Dates: start: 20201016
  11. INNOHEP [Concomitant]
     Active Substance: TINZAPARIN SODIUM
     Dosage: 3000 IU, QD
     Route: 042
     Dates: start: 20200718, end: 20200718
  12. FORTUM [Concomitant]
     Active Substance: CEFTAZIDIME
     Indication: FEBRILE NEUTROPENIA
     Dosage: 1950 MG, QD
     Route: 042
     Dates: start: 20200718, end: 20200726
  13. TOPOTECAN HYDROCHLORIDE. [Suspect]
     Active Substance: TOPOTECAN HYDROCHLORIDE
     Indication: REFRACTORY CANCER
     Dosage: 0.75 MG/M2
     Route: 042
     Dates: start: 20200708
  14. LOVENOX [Concomitant]
     Active Substance: ENOXAPARIN SODIUM
     Indication: VENA CAVA THROMBOSIS
     Dosage: QD (1000 UI/J)
     Route: 042
     Dates: start: 20201013
  15. ENDOXAN [Suspect]
     Active Substance: CYCLOPHOSPHAMIDE
     Indication: NEUROBLASTOMA
     Dosage: UNK
     Route: 065
  16. INNOHEP [Concomitant]
     Active Substance: TINZAPARIN SODIUM
     Indication: THROMBOSIS
     Dosage: 3000 IU, QD
     Route: 058
     Dates: start: 20200706, end: 20200713
  17. FORTUM [Concomitant]
     Active Substance: CEFTAZIDIME
     Dosage: 2100 MG,QD
     Route: 042
     Dates: start: 20201017
  18. SPASFON LYOC [Concomitant]
     Active Substance: PHLOROGLUCINOL
     Indication: ABDOMINAL PAIN
     Dosage: UNK
     Route: 065
  19. AMIKLIN [Concomitant]
     Active Substance: AMIKACIN SULFATE
     Indication: FEBRILE NEUTROPENIA
     Dosage: 250MG
     Route: 042
     Dates: start: 20200719, end: 20200721
  20. VENETOCLAX. [Suspect]
     Active Substance: VENETOCLAX
     Indication: REFRACTORY CANCER
     Dosage: 120MG
     Route: 048
     Dates: start: 20200706
  21. INNOHEP [Concomitant]
     Active Substance: TINZAPARIN SODIUM
     Indication: ANTICOAGULANT THERAPY
     Dosage: 3000 IU, QD
     Route: 058
     Dates: start: 20200717
  22. ZOVIRAX [Concomitant]
     Active Substance: ACYCLOVIR
     Indication: HERPES SIMPLEX
     Dosage: 540 MG,QD
     Route: 042
     Dates: start: 20201021

REACTIONS (1)
  - Febrile bone marrow aplasia [Recovered/Resolved]

NARRATIVE: CASE EVENT DATE: 20201110
